FAERS Safety Report 7506962-8 (Version None)
Quarter: 2011Q2

REPORT INFORMATION
  Report Type: 
  Country: None (occurrence: None)
  Receive Date: 20110526
  Receipt Date: 20110513
  Transmission Date: 20111010
  Serious: Yes (Death, Other)
  Sender: FDA-Public Use
  Company Number: US-UCBSA-018612

PATIENT
  Age: 73 Year
  Sex: Female
  Weight: 52 kg

DRUGS (4)
  1. PHENYTOIN [Suspect]
     Indication: STATUS EPILEPTICUS
     Route: 042
  2. LEVETIRACETAM [Suspect]
     Indication: STATUS EPILEPTICUS
     Route: 048
  3. LACOSAMIDE [Suspect]
     Indication: STATUS EPILEPTICUS
     Route: 042
  4. CEFEPIME [Concomitant]
     Route: 042

REACTIONS (1)
  - ANGIOEDEMA [None]
